FAERS Safety Report 4510624-9 (Version None)
Quarter: 2004Q4

REPORT INFORMATION
  Report Type: 
  Country: None (occurrence: None)
  Receive Date: 20041122
  Receipt Date: 20041115
  Transmission Date: 20050328
  Serious: Yes (Life-Threatening)
  Sender: FDA-Public Use
  Company Number: 2004-122037-NL

PATIENT
  Age: 24 Year
  Sex: Female

DRUGS (1)
  1. MARVELON            /NET/ [Suspect]
     Indication: CONTRACEPTION
     Dosage: DF

REACTIONS (1)
  - SUBARACHNOID HAEMORRHAGE [None]
